FAERS Safety Report 6555716-8 (Version None)
Quarter: 2010Q1

REPORT INFORMATION
  Report Type: 
  Country: None (occurrence: None)
  Receive Date: 20100128
  Receipt Date: 20100118
  Transmission Date: 20100710
  Serious: Yes (Other)
  Sender: FDA-Public Use
  Company Number: US-ELI_LILLY_AND_COMPANY-US201001004361

PATIENT
  Age: 48 Year
  Sex: Female

DRUGS (4)
  1. CYMBALTA [Suspect]
     Dosage: 60 MG, 2/D
  2. ULTRAM [Concomitant]
     Dosage: 100 MG, 3/D
     Dates: end: 20100118
  3. LYRICA [Concomitant]
     Dosage: 50 MG, 2/D
  4. TOPAMAX [Concomitant]
     Dosage: 100 MG, 2/D

REACTIONS (4)
  - CHILLS [None]
  - FALL [None]
  - LOSS OF CONSCIOUSNESS [None]
  - VERTIGO [None]
